FAERS Safety Report 9804503 (Version 1)
Quarter: 2014Q1

REPORT INFORMATION
  Report Type: Spontaneous
  Country: GB (occurrence: GB)
  Receive Date: 20140108
  Receipt Date: 20140108
  Transmission Date: 20141002
  Serious: Yes (Other)
  Sender: FDA-Public Use
  Company Number: GB-GLAXOSMITHKLINE-B0957375A

PATIENT
  Age: 76 Year
  Sex: Male
  Weight: 62.7 kg

DRUGS (1)
  1. PAZOPANIB [Suspect]
     Indication: PLEURAL NEOPLASM
     Dosage: 800MG PER DAY
     Route: 048
     Dates: start: 20131003, end: 20131212

REACTIONS (1)
  - Renal infarct [Recovered/Resolved]
